FAERS Safety Report 10949946 (Version 1)
Quarter: 2015Q1

REPORT INFORMATION
  Report Type: Spontaneous
  Country: US (occurrence: None)
  Receive Date: 20150226
  Receipt Date: 20150226
  Transmission Date: 20150721
  Serious: Yes (Hospitalization, Other)
  Sender: FDA-Public Use
  Company Number: 0229192

PATIENT
  Age: 66 Year
  Sex: Female
  Weight: 33.1 kg

DRUGS (4)
  1. ACETYLSALICYLIC (ACETYLSALICYLIC ACID) [Concomitant]
  2. PROTONIX [Suspect]
     Active Substance: PANTOPRAZOLE SODIUM
     Indication: ABDOMINAL DISCOMFORT
     Dates: start: 2005
  3. PREVACID [Suspect]
     Active Substance: LANSOPRAZOLE
     Indication: GASTRIC DISORDER
  4. TYLENOL [Concomitant]
     Active Substance: ACETAMINOPHEN

REACTIONS (15)
  - Cardiac disorder [None]
  - Chest pain [None]
  - Migraine [None]
  - Headache [None]
  - Palpitations [None]
  - Drug ineffective [None]
  - Flatulence [None]
  - Arthritis [None]
  - Abdominal discomfort [None]
  - Heart rate increased [None]
  - Nausea [None]
  - Eating disorder [None]
  - Pain [None]
  - Myocardial infarction [None]
  - Decreased appetite [None]

NARRATIVE: CASE EVENT DATE: 2011
